FAERS Safety Report 11940856 (Version 2)
Quarter: 2016Q1

REPORT INFORMATION
  Report Type: Report from Study
  Country: BR (occurrence: BR)
  Receive Date: 20160122
  Receipt Date: 20160224
  Transmission Date: 20160526
  Serious: Yes (Hospitalization, Other)
  Sender: FDA-Public Use
  Company Number: PHHY2015BR084035

PATIENT
  Age: 46 Year
  Sex: Female
  Weight: 50 kg

DRUGS (4)
  1. EXJADE [Suspect]
     Active Substance: DEFERASIROX
     Indication: THALASSAEMIA BETA
     Dosage: 30 MG/KG, QD (3 DF OF 500 MG)
     Route: 048
     Dates: start: 201408
  2. EXJADE [Suspect]
     Active Substance: DEFERASIROX
     Dosage: 30 MG/KG, QD (3 DF OF 500 MG)
     Route: 048
  3. EXJADE [Suspect]
     Active Substance: DEFERASIROX
     Dosage: 250 MG, UNK
     Route: 048
  4. FOLIC ACID. [Concomitant]
     Active Substance: FOLIC ACID
     Indication: THALASSAEMIA
     Dosage: 1 DF OF 5 MG, QD
     Route: 048

REACTIONS (6)
  - Micturition frequency decreased [Recovered/Resolved]
  - Hepatic cirrhosis [Recovered/Resolved]
  - Visual impairment [Unknown]
  - Fatigue [Recovered/Resolved]
  - Abdominal distension [Recovered/Resolved]
  - Dyspnoea [Recovered/Resolved]

NARRATIVE: CASE EVENT DATE: 201511
